FAERS Safety Report 9934453 (Version 1)
Quarter: 2014Q1

REPORT INFORMATION
  Report Type: Report from Study
  Country: US (occurrence: US)
  Receive Date: 20140228
  Receipt Date: 20140228
  Transmission Date: 20141002
  Serious: Yes (Hospitalization, Other)
  Sender: FDA-Public Use
  Company Number: US-ABBVIE-14P-163-1205296-00

PATIENT
  Age: 27 Year
  Sex: Female

DRUGS (5)
  1. HUMIRA [Suspect]
     Indication: CROHN^S DISEASE
     Dates: start: 20130501
  2. HUMIRA [Suspect]
     Dates: start: 20140219
  3. VITAMIN B [Concomitant]
     Indication: VITAMIN B COMPLEX DEFICIENCY
     Dosage: MONTHLY
     Route: 050
  4. PROCTOFOAM [Concomitant]
     Indication: PRODUCT USED FOR UNKNOWN INDICATION
     Dosage: EVERY NIGHT, WAS SWITCHED TO MESALAMINE ENEMA
  5. MESALAMINE [Concomitant]
     Indication: PRODUCT USED FOR UNKNOWN INDICATION
     Dosage: EVERY MORNING AND EVERY NIGHT

REACTIONS (7)
  - Asthenia [Recovering/Resolving]
  - Crohn^s disease [Recovering/Resolving]
  - Abdominal pain lower [Recovering/Resolving]
  - Nausea [Recovering/Resolving]
  - Vomiting [Recovering/Resolving]
  - Pyrexia [Recovering/Resolving]
  - Colitis [Recovering/Resolving]
